FAERS Safety Report 12695603 (Version 1)
Quarter: 2016Q3

REPORT INFORMATION
  Report Type: Spontaneous
  Country: US (occurrence: US)
  Receive Date: 20160829
  Receipt Date: 20160829
  Transmission Date: 20161109
  Serious: No
  Sender: FDA-Public Use
  Company Number: US-KALEO, INC-2015SA211461

PATIENT
  Sex: 0

DRUGS (1)
  1. AUVI-Q [Suspect]
     Active Substance: EPINEPHRINE
     Indication: ANAPHYLACTIC REACTION
     Dosage: UNKNOWN DOSE, TWICE, IM OR SC
     Dates: start: 20150928

REACTIONS (3)
  - Urticaria [Unknown]
  - Drug ineffective [None]
  - Burning sensation [Unknown]

NARRATIVE: CASE EVENT DATE: 20150928
